FAERS Safety Report 26121132 (Version 1)
Quarter: 2025Q4

REPORT INFORMATION
  Report Type: Spontaneous
  Country: EU (occurrence: EU)
  Receive Date: 20251204
  Receipt Date: 20251204
  Transmission Date: 20260118
  Serious: Yes (Hospitalization, Other)
  Sender: SANOFI AVENTIS
  Company Number: None

PATIENT
  Age: 66 Year
  Sex: Female
  Weight: 66.9 kg

DRUGS (3)
  1. ENOXAPARIN SODIUM [Suspect]
     Active Substance: ENOXAPARIN SODIUM
     Indication: Anticoagulant therapy
     Dosage: 1.6 ML, QD (0.8 ML X2/D (8000 IU X2/D))
     Route: 058
     Dates: start: 20250929, end: 20251008
  2. COUMADIN [Suspect]
     Active Substance: WARFARIN SODIUM
     Indication: Mitral valve disease
     Dosage: 2 MG, QD
     Route: 048
     Dates: start: 20251006, end: 20251007
  3. COLCHICINE\OPIUM\TIEMONIUM METHYLSULFATE [Suspect]
     Active Substance: COLCHICINE\OPIUM\TIEMONIUM METHYLSULFATE
     Indication: Gout
     Dosage: 1 DF, QD
     Route: 048
     Dates: start: 20251002, end: 20251015

REACTIONS (3)
  - Drug interaction [Recovered/Resolved]
  - International normalised ratio increased [Recovered/Resolved]
  - Subdural haematoma [Recovering/Resolving]

NARRATIVE: CASE EVENT DATE: 20251006
